FAERS Safety Report 11439628 (Version 1)
Quarter: 2015Q3

REPORT INFORMATION
  Report Type: Spontaneous
  Country: US (occurrence: US)
  Receive Date: 20150901
  Receipt Date: 20150901
  Transmission Date: 20151125
  Serious: Yes (Other)
  Sender: FDA-Public Use
  Company Number: US-ROCHE-1091366

PATIENT
  Sex: Female

DRUGS (11)
  1. TELAPREVIR [Suspect]
     Active Substance: TELAPREVIR
     Indication: CHRONIC HEPATITIS C
     Route: 065
     Dates: start: 20120727, end: 20121019
  2. CELLCEPT [Concomitant]
     Active Substance: MYCOPHENOLATE MOFETIL\MYCOPHENOLATE MOFETIL HYDROCHLORIDE
     Route: 065
  3. PEGASYS [Suspect]
     Active Substance: PEGINTERFERON ALFA-2A
     Indication: CHRONIC HEPATITIS C
     Route: 042
     Dates: start: 20120628
  4. PROCRIT [Concomitant]
     Active Substance: ERYTHROPOIETIN
     Route: 065
  5. DAPSONE. [Concomitant]
     Active Substance: DAPSONE
     Route: 065
  6. CYCLOSPORIN [Concomitant]
     Active Substance: CYCLOSPORINE
     Route: 065
  7. NEUPOGEN [Concomitant]
     Active Substance: FILGRASTIM
     Route: 065
  8. PREDNISONE. [Concomitant]
     Active Substance: PREDNISONE
     Route: 065
  9. REBETOL [Suspect]
     Active Substance: RIBAVIRIN
     Indication: CHRONIC HEPATITIS C
     Route: 065
     Dates: start: 20120628
  10. REBETOL [Suspect]
     Active Substance: RIBAVIRIN
     Route: 065
     Dates: start: 20120628
  11. PRILOSEC [Concomitant]
     Active Substance: OMEPRAZOLE MAGNESIUM
     Route: 065

REACTIONS (20)
  - Dry eye [Unknown]
  - Ocular hyperaemia [Unknown]
  - Dry mouth [Unknown]
  - Fatigue [Unknown]
  - Haematocrit decreased [Unknown]
  - Dyspepsia [Unknown]
  - Decreased appetite [Unknown]
  - Eye discharge [Unknown]
  - Neuropathy peripheral [Unknown]
  - Arthralgia [Unknown]
  - Back pain [Unknown]
  - Herpes virus infection [Unknown]
  - Pain [Unknown]
  - Weight decreased [Unknown]
  - Dysgeusia [Unknown]
  - Stomatitis [Unknown]
  - Irritability [Unknown]
  - Night sweats [Unknown]
  - Red blood cell count decreased [Unknown]
  - Dizziness [Unknown]
